FAERS Safety Report 23387648 (Version 1)
Quarter: 2024Q1

REPORT INFORMATION
  Report Type: Spontaneous
  Country: US (occurrence: None)
  Receive Date: 20240109
  Receipt Date: 20240109
  Transmission Date: 20240409
  Serious: Yes (Hospitalization, Other)
  Sender: FDA-Public Use
  Company Number: None

PATIENT
  Age: 41 Year
  Sex: Female
  Weight: 74.7 kg

DRUGS (4)
  1. ELIQUIS [Suspect]
     Active Substance: APIXABAN
     Indication: Deep vein thrombosis
     Dosage: FREQUENCY : TWICE A DAY;?
     Route: 048
     Dates: start: 20220105, end: 20231113
  2. HEPARIN [Suspect]
     Active Substance: HEPARIN SODIUM
  3. LOVENOX [Suspect]
     Active Substance: ENOXAPARIN SODIUM
  4. WARFARIN [Suspect]
     Active Substance: WARFARIN

REACTIONS (7)
  - Antiphospholipid antibodies positive [None]
  - Cerebrovascular accident [None]
  - Headache [None]
  - Mitral valve disease [None]
  - Magnetic resonance imaging head abnormal [None]
  - Vaginal haemorrhage [None]
  - Cardiac valve vegetation [None]

NARRATIVE: CASE EVENT DATE: 20231113
